FAERS Safety Report 7126168-4 (Version None)
Quarter: 2010Q4

REPORT INFORMATION
  Report Type: 
  Country: None (occurrence: None)
  Receive Date: 20101129
  Receipt Date: 20101117
  Transmission Date: 20110411
  Serious: Yes (Other)
  Sender: FDA-Public Use
  Company Number: JP-SANOFI-AVENTIS-2010SA065290

PATIENT
  Age: 70 Year
  Sex: Male
  Weight: 62.5 kg

DRUGS (1)
  1. PLAVIX [Suspect]
     Route: 048
     Dates: start: 20100401, end: 20101025

REACTIONS (1)
  - INTERSTITIAL LUNG DISEASE [None]
